FAERS Safety Report 12768369 (Version 3)
Quarter: 2016Q4

REPORT INFORMATION
  Report Type: Report from Study
  Country: None (occurrence: US)
  Receive Date: 20160921
  Receipt Date: 20161024
  Transmission Date: 20170207
  Serious: Yes (Hospitalization, Other)
  Sender: FDA-Public Use
  Company Number: US-ABBVIE-16K-163-1729028-00

PATIENT
  Age: 63 Year
  Sex: Female

DRUGS (1)
  1. HUMIRA [Suspect]
     Active Substance: ADALIMUMAB
     Indication: CROHN^S DISEASE
     Route: 058
     Dates: start: 20160223, end: 2016

REACTIONS (8)
  - Crohn^s disease [Recovering/Resolving]
  - Gallbladder cancer [Recovering/Resolving]
  - Intestinal perforation [Recovering/Resolving]
  - Dyspnoea [Unknown]
  - Intestinal obstruction [Recovering/Resolving]
  - Inappropriate schedule of drug administration [Recovered/Resolved]
  - Post procedural bile leak [Recovering/Resolving]
  - Drug ineffective [Recovering/Resolving]

NARRATIVE: CASE EVENT DATE: 2016
